FAERS Safety Report 7747310-8 (Version None)
Quarter: 2011Q3

REPORT INFORMATION
  Report Type: 
  Country: None (occurrence: None)
  Receive Date: 20110913
  Receipt Date: 20110905
  Transmission Date: 20111222
  Serious: Yes (Other)
  Sender: FDA-Public Use
  Company Number: GB-ASTRAZENECA-2011SE49864

PATIENT
  Age: 67 Year
  Sex: Female
  Weight: 80 kg

DRUGS (2)
  1. VIMOVO [Suspect]
     Indication: OSTEOARTHRITIS
     Dosage: 500/20 MG TWO TABLET
     Route: 048
     Dates: start: 20110816, end: 20110817
  2. ACETAMINOPHEN [Concomitant]
     Indication: ARTHRITIS

REACTIONS (4)
  - VERTIGO [None]
  - FEELING HOT [None]
  - ADVERSE DRUG REACTION [None]
  - NAUSEA [None]
